FAERS Safety Report 8373692-2 (Version None)
Quarter: 2012Q2

REPORT INFORMATION
  Report Type: 
  Country: None (occurrence: None)
  Receive Date: 20120521
  Receipt Date: 20120229
  Transmission Date: 20120825
  Serious: Yes (Hospitalization)
  Sender: FDA-Public Use
  Company Number: US-ALEXION-A201200258

PATIENT
  Sex: Male

DRUGS (1)
  1. SOLIRIS [Suspect]
     Indication: PAROXYSMAL NOCTURNAL HAEMOGLOBINURIA
     Dosage: UNK
     Route: 042

REACTIONS (5)
  - BLOOD BILIRUBIN ABNORMAL [None]
  - BLOOD COUNT ABNORMAL [None]
  - JAUNDICE [None]
  - MUSCULOSKELETAL CHEST PAIN [None]
  - EXTRAVASCULAR HAEMOLYSIS [None]
